FAERS Safety Report 4604280-9 (Version None)
Quarter: 2005Q1

REPORT INFORMATION
  Report Type: 
  Country: None (occurrence: None)
  Receive Date: 20050308
  Receipt Date: 20050308
  Transmission Date: 20050727
  Serious: Yes (Life-Threatening)
  Sender: FDA-Public Use
  Company Number: None

PATIENT
  Age: 54 Year
  Sex: Male
  Weight: 74.3 kg

DRUGS (2)
  1. AMITRIPTYLINE HCL [Suspect]
     Indication: CERVICOBRACHIAL SYNDROME
     Dosage: 25 MG PO QHS
     Route: 048
     Dates: start: 20040501, end: 20040828
  2. BACLOFEN [Suspect]

REACTIONS (2)
  - LOSS OF CONSCIOUSNESS [None]
  - SUICIDE ATTEMPT [None]
